FAERS Safety Report 17650866 (Version 1)
Quarter: 2020Q2

REPORT INFORMATION
  Report Type: Spontaneous
  Country: US (occurrence: US)
  Receive Date: 20200409
  Receipt Date: 20200409
  Transmission Date: 20200713
  Serious: No
  Sender: FDA-Public Use
  Company Number: None

PATIENT
  Age: 63 Year
  Sex: Female
  Weight: 90.9 kg

DRUGS (16)
  1. CALCIUM CARBONATE 600MG, ORAL [Concomitant]
  2. VITAMIN D3, ORAL [Concomitant]
  3. LETROZOLE 2.5MG, ORAL [Concomitant]
  4. MAGNESIUM OXIDE 400MG ,ORAL [Concomitant]
  5. ROUSUVASTATIN CALCIUM 40MG, ORAL [Concomitant]
  6. FENOFIBRATE 160MG, ORAL [Concomitant]
  7. LEXAPRO 10MG, ORAL [Concomitant]
  8. OMPRAZOLE 40MG, ORAL [Concomitant]
  9. DILTIAZEM ER BEADS 120MG, ORAL [Concomitant]
  10. ZESTRIL 20MG ,ORAL [Concomitant]
  11. DILTIAZEM ER BEADS 360, ORAL [Concomitant]
  12. TYLENOL 325MG, ORAL [Concomitant]
  13. VERZENIO [Suspect]
     Active Substance: ABEMACICLIB
     Indication: BREAST CANCER
     Route: 048
     Dates: start: 20190627, end: 20200409
  14. METFORMIN 500MG ,ORAL [Concomitant]
  15. METOPROLOL TARTRATE 25MG, ORAL [Concomitant]
  16. ZETIA, 10MG, ORAL [Concomitant]

REACTIONS (1)
  - Breast cancer [None]

NARRATIVE: CASE EVENT DATE: 20200409
